FAERS Safety Report 7045921-9 (Version None)
Quarter: 2010Q4

REPORT INFORMATION
  Report Type: 
  Country: None (occurrence: None)
  Receive Date: 20101014
  Receipt Date: 20101004
  Transmission Date: 20110411
  Serious: Yes (Hospitalization, Other)
  Sender: FDA-Public Use
  Company Number: US-ELI_LILLY_AND_COMPANY-US201010002070

PATIENT
  Sex: Male

DRUGS (3)
  1. FORTEO [Suspect]
     Indication: OSTEOPOROSIS
     Dosage: 20 UG, DAILY (1/D)
     Dates: end: 20100923
  2. CARDIZEM [Concomitant]
  3. COUMADIN [Concomitant]

REACTIONS (4)
  - ABDOMINAL PAIN [None]
  - ATRIAL FIBRILLATION [None]
  - COLECTOMY [None]
  - POST PROCEDURAL COMPLICATION [None]
